FAERS Safety Report 6544140-X (Version None)
Quarter: 2010Q1

REPORT INFORMATION
  Report Type: 
  Country: None (occurrence: None)
  Receive Date: 20100119
  Receipt Date: 20100119
  Transmission Date: 20100710
  Serious: No
  Sender: FDA-Public Use
  Company Number: None

PATIENT
  Sex: Female
  Weight: 63.5036 kg

DRUGS (2)
  1. MOTRIN IB [Suspect]
     Indication: DYSMENORRHOEA
     Dosage: 800MG 3-5 TIMES PER WEEK PO
     Route: 048
     Dates: start: 20091214, end: 20100114
  2. MOTRIN IB [Suspect]
     Indication: HEADACHE
     Dosage: 800MG 3-5 TIMES PER WEEK PO
     Route: 048
     Dates: start: 20091214, end: 20100114

REACTIONS (3)
  - HEADACHE [None]
  - NAUSEA [None]
  - PRODUCT QUALITY ISSUE [None]
